FAERS Safety Report 7323246-1 (Version None)
Quarter: 2011Q1

REPORT INFORMATION
  Report Type: 
  Country: None (occurrence: None)
  Receive Date: 20110301
  Receipt Date: 20110217
  Transmission Date: 20110831
  Serious: Yes (Other)
  Sender: FDA-Public Use
  Company Number: US-SANOFI-AVENTIS-2010SA033634

PATIENT
  Age: 69 Year
  Sex: Female
  Weight: 127 kg

DRUGS (24)
  1. MULTAQ [Suspect]
     Route: 048
     Dates: end: 20100413
  2. DILTIAZEM [Concomitant]
     Dates: end: 20091101
  3. HYDROCODONE [Concomitant]
     Dosage: 1/2 TAB OF 10MG
  4. CALCIUM [Concomitant]
  5. AMIODARONE [Concomitant]
     Indication: ATRIAL FIBRILLATION
     Route: 048
     Dates: start: 20080901, end: 20090801
  6. DILTIAZEM [Concomitant]
     Dates: start: 20091101
  7. MULTAQ [Suspect]
     Dosage: AS NEEDED
     Route: 048
  8. MULTAQ [Suspect]
     Indication: ATRIAL FLUTTER
     Route: 048
     Dates: start: 20091101
  9. MULTAQ [Suspect]
     Route: 048
     Dates: end: 20100413
  10. CARVEDILOL [Concomitant]
  11. TIOTROPIUM BROMIDE [Concomitant]
     Dosage: 1 PUFF DAILY
  12. ASPIRIN [Concomitant]
  13. AMIODARONE [Concomitant]
     Indication: ATRIAL FLUTTER
     Route: 048
     Dates: start: 20080901, end: 20090801
  14. CLARITIN [Concomitant]
  15. VITAMIN E [Concomitant]
     Dosage: DOSE:400 UNIT(S)
  16. MULTAQ [Suspect]
     Dosage: AS NEEDED
     Route: 048
  17. SINGULAIR [Concomitant]
  18. XOPENEX [Concomitant]
  19. VITAMIN B COMPLEX CAP [Concomitant]
  20. VITAMIN D [Concomitant]
  21. MULTI-VITAMINS [Concomitant]
  22. MULTAQ [Suspect]
     Indication: ATRIAL FIBRILLATION
     Route: 048
     Dates: start: 20091101
  23. WARFARIN [Concomitant]
     Dosage: 5MG EXCEPT 7.5MG ON THURS.
  24. FUROSEMIDE [Concomitant]

REACTIONS (9)
  - PRURITUS [None]
  - INFLUENZA LIKE ILLNESS [None]
  - ATRIAL FIBRILLATION [None]
  - WEIGHT INCREASED [None]
  - INCORRECT DOSE ADMINISTERED [None]
  - HEART RATE DECREASED [None]
  - OEDEMA PERIPHERAL [None]
  - SOMNOLENCE [None]
  - DYSPNOEA [None]
